FAERS Safety Report 9095219 (Version 1)
Quarter: 2013Q1

REPORT INFORMATION
  Report Type: Spontaneous
  Country: GB (occurrence: None)
  Receive Date: 20130123
  Receipt Date: 20130123
  Transmission Date: 20140127
  Serious: Yes (Death, Other)
  Sender: FDA-Public Use
  Company Number: AUR-APL-2013-00363

PATIENT
  Age: 64 Year
  Sex: Male

DRUGS (2)
  1. MIRTAZAPINE (MIRTAZAPINE) [Suspect]
     Indication: DEPRESSION
     Route: 048
  2. CITALOPRAM [Concomitant]

REACTIONS (2)
  - Completed suicide [None]
  - Ill-defined disorder [None]
